FAERS Safety Report 14938207 (Version 2)
Quarter: 2018Q2

REPORT INFORMATION
  Report Type: Report from Study
  Country: MX (occurrence: MX)
  Receive Date: 20180525
  Receipt Date: 20180619
  Transmission Date: 20180711
  Serious: No
  Sender: FDA-Public Use
  Company Number: PHHY2018MX006453

PATIENT
  Age: 68 Year
  Sex: Female
  Weight: 37 kg

DRUGS (3)
  1. AZARGA [Suspect]
     Active Substance: BRINZOLAMIDE\TIMOLOL MALEATE
     Indication: GLAUCOMA
     Dosage: 2 GTT (10/6.8MG 5 ML)
     Route: 047
     Dates: start: 20171001
  2. REFRESH [Concomitant]
     Active Substance: UNSPECIFIED INGREDIENT
     Indication: DRY EYE
     Dosage: UNK, Q4H
     Route: 047
     Dates: start: 201710
  3. SNELVIT [Concomitant]
     Indication: VITAMIN SUPPLEMENTATION
     Dosage: 2 OT, UNK
     Route: 047
     Dates: start: 201710

REACTIONS (2)
  - Eye irritation [Not Recovered/Not Resolved]
  - Hypoacusis [Not Recovered/Not Resolved]

NARRATIVE: CASE EVENT DATE: 20171001
